FAERS Safety Report 5761742-9 (Version None)
Quarter: 2008Q2

REPORT INFORMATION
  Report Type: 
  Country: None (occurrence: None)
  Receive Date: 20080606
  Receipt Date: 20080529
  Transmission Date: 20081010
  Serious: Yes (Hospitalization)
  Sender: FDA-Public Use
  Company Number: GB-ABBOTT-08P-167-0454110-00

PATIENT
  Age: 29 Year
  Sex: Male
  Weight: 82 kg

DRUGS (3)
  1. KALETRA [Suspect]
     Indication: HIV INFECTION
     Dosage: OVERDOSE OF APPROXIMATELY 50 TABLETS
     Dates: start: 20080206, end: 20080428
  2. TRUVADA [Suspect]
     Indication: HIV INFECTION
     Dosage: OVERDOSE OF APPROXIMATELY 28 TABLETS
     Dates: start: 20080206, end: 20080428
  3. FLUOXETINE HYDROCHLORIDE [Suspect]
     Indication: DEPRESSION
     Dosage: OVERDOSE OF APPROXIMATELY 28 CAPSULES

REACTIONS (7)
  - ANXIETY [None]
  - DEPRESSED MOOD [None]
  - DIARRHOEA [None]
  - INSOMNIA [None]
  - MENTAL STATUS CHANGES [None]
  - OVERDOSE [None]
  - VOMITING [None]
